FAERS Safety Report 11843325 (Version 1)
Quarter: 2015Q4

REPORT INFORMATION
  Report Type: Spontaneous
  Country: US (occurrence: US)
  Receive Date: 20151217
  Receipt Date: 20151217
  Transmission Date: 20160305
  Serious: Yes (Hospitalization)
  Sender: FDA-Public Use
  Company Number: ZYD-14-AE-299

PATIENT
  Age: 26 Year
  Sex: Female
  Weight: 59.4 kg

DRUGS (3)
  1. AMIODARONE [Suspect]
     Active Substance: AMIODARONE
  2. MACITENTAN [Concomitant]
     Active Substance: MACITENTAN
  3. TREPROSTINIL [Suspect]
     Active Substance: TREPROSTINIL
     Indication: COR PULMONALE CHRONIC
     Dosage: 0.171UG/KG
     Route: 042
     Dates: start: 20101110

REACTIONS (1)
  - Hypothyroidism [Unknown]

NARRATIVE: CASE EVENT DATE: 20140911
